FAERS Safety Report 8209103-7 (Version None)
Quarter: 2012Q1

REPORT INFORMATION
  Report Type: 
  Country: None (occurrence: None)
  Receive Date: 20120314
  Receipt Date: 20120305
  Transmission Date: 20120608
  Serious: Yes (Hospitalization)
  Sender: FDA-Public Use
  Company Number: US-BRISTOL-MYERS SQUIBB COMPANY-16282238

PATIENT
  Age: 60 Year
  Sex: Male

DRUGS (6)
  1. ZOSYN [Concomitant]
  2. HEPARIN [Concomitant]
     Dosage: 1DF:5000 UNITS
  3. PROTONIX [Concomitant]
  4. SODIUM CHLORIDE [Concomitant]
  5. FENTANYL [Concomitant]
     Indication: PAIN
     Route: 042
  6. SPRYCEL [Suspect]
     Indication: CHRONIC MYELOID LEUKAEMIA
     Route: 048
     Dates: start: 20111101

REACTIONS (2)
  - PRURITUS [None]
  - COLONIC OBSTRUCTION [None]
